FAERS Safety Report 5221651-0 (Version None)
Quarter: 2007Q1

REPORT INFORMATION
  Report Type: 
  Country: None (occurrence: None)
  Receive Date: 20070129
  Receipt Date: 20070117
  Transmission Date: 20070707
  Serious: Yes (Other)
  Sender: FDA-Public Use
  Company Number: PHBS2007JP01273

PATIENT
  Age: 72 Year
  Sex: Male

DRUGS (3)
  1. TEGRETOL [Suspect]
     Indication: TRIGEMINAL NEURALGIA
     Dosage: 100 MG/DAY
     Route: 048
     Dates: start: 20060401
  2. MUCODYNE [Concomitant]
     Route: 048
  3. H2-RECEPTOR ANTAGONISTS [Concomitant]
     Route: 048

REACTIONS (6)
  - CHEST X-RAY ABNORMAL [None]
  - COUGH [None]
  - INTERSTITIAL LUNG DISEASE [None]
  - NASOPHARYNGITIS [None]
  - PULMONARY EOSINOPHILIA [None]
  - PYREXIA [None]
